FAERS Safety Report 8209123-2 (Version None)
Quarter: 2012Q1

REPORT INFORMATION
  Report Type: 
  Country: None (occurrence: None)
  Receive Date: 20120314
  Receipt Date: 20120305
  Transmission Date: 20120608
  Serious: Yes (Hospitalization)
  Sender: FDA-Public Use
  Company Number: US-BAYER-2011-103591

PATIENT
  Age: 23 Year
  Sex: Female
  Weight: 50 kg

DRUGS (5)
  1. YAZ [Suspect]
     Dosage: UNK
     Dates: start: 20080801, end: 20091109
  2. ALDORIL 15 [Concomitant]
     Dosage: DAILY DOSE 10 MG
     Route: 048
  3. METAMUCIL-2 [Concomitant]
     Dosage: UNK
     Dates: start: 20091001
  4. ANUSOL HC [Concomitant]
     Dosage: UNK
     Dates: start: 20091001
  5. ADDERALL 5 [Concomitant]
     Dosage: DAILY DOSE 10 MG
     Route: 048
     Dates: start: 20090201

REACTIONS (7)
  - EMOTIONAL DISTRESS [None]
  - ANHEDONIA [None]
  - CHOLECYSTITIS CHRONIC [None]
  - CHOLECYSTECTOMY [None]
  - INJURY [None]
  - ANXIETY [None]
  - GENERAL PHYSICAL HEALTH DETERIORATION [None]
